FAERS Safety Report 24753823 (Version 4)
Quarter: 2025Q3

REPORT INFORMATION
  Report Type: Spontaneous
  Country: CN (occurrence: CN)
  Receive Date: 20241219
  Receipt Date: 20250803
  Transmission Date: 20251021
  Serious: Yes (Death, Hospitalization, Other)
  Sender: ALEXION PHARMACEUTICALS
  Company Number: CN-AstraZeneca-CH-00765792A

PATIENT
  Age: 60 Year
  Sex: Female

DRUGS (3)
  1. TAGRISSO [Suspect]
     Active Substance: OSIMERTINIB
  2. SAVOLITINIB [Suspect]
     Active Substance: SAVOLITINIB
     Indication: MET gene amplification
     Route: 065
  3. CATEQUENTINIB [Suspect]
     Active Substance: CATEQUENTINIB
     Route: 065

REACTIONS (4)
  - Death [Fatal]
  - Disseminated intravascular coagulation [Not Recovered/Not Resolved]
  - Haemolysis [Not Recovered/Not Resolved]
  - Off label use [Unknown]
